FAERS Safety Report 5982656-5 (Version None)
Quarter: 2008Q4

REPORT INFORMATION
  Report Type: 
  Country: None (occurrence: None)
  Receive Date: 20081208
  Receipt Date: 20080129
  Transmission Date: 20090506
  Serious: Yes (Hospitalization)
  Sender: FDA-Public Use
  Company Number: US-AMGEN-STX263060

PATIENT
  Sex: Female

DRUGS (2)
  1. ENBREL [Suspect]
     Indication: RHEUMATOID ARTHRITIS
     Route: 058
     Dates: start: 19990601
  2. METHOTREXATE [Concomitant]
     Route: 048
     Dates: start: 19990101

REACTIONS (8)
  - ENDOMETRIAL HYPERTROPHY [None]
  - HEPATIC ENZYME INCREASED [None]
  - LOCALISED INFECTION [None]
  - OROPHARYNGEAL PAIN [None]
  - PYREXIA [None]
  - SINUSITIS [None]
  - STAPHYLOCOCCAL SEPSIS [None]
  - TINNITUS [None]
